FAERS Safety Report 18726117 (Version 1)
Quarter: 2021Q1

REPORT INFORMATION
  Report Type: Spontaneous
  Country: FR (occurrence: FR)
  Receive Date: 20210111
  Receipt Date: 20210111
  Transmission Date: 20210419
  Serious: Yes (Other)
  Sender: FDA-Public Use
  Company Number: FR-SA-2020SA377675

PATIENT
  Sex: Female

DRUGS (1)
  1. APROVEL [Suspect]
     Active Substance: IRBESARTAN
     Dosage: UNK
     Route: 065

REACTIONS (1)
  - Breast cancer [Unknown]
